FAERS Safety Report 24387668 (Version 1)
Quarter: 2024Q4

REPORT INFORMATION
  Report Type: Spontaneous
  Country: US (occurrence: None)
  Receive Date: 20241001
  Receipt Date: 20241001
  Transmission Date: 20250115
  Serious: Yes (Other)
  Sender: Public
  Company Number: None

PATIENT
  Age: 37 Year
  Sex: Female
  Weight: 78.75 kg

DRUGS (11)
  1. MONISTAT 3 [Suspect]
     Active Substance: MICONAZOLE NITRATE
     Indication: Vulvovaginal mycotic infection
     Dates: start: 20240930, end: 20241001
  2. LAMICTAL [Concomitant]
     Active Substance: LAMOTRIGINE
  3. NORETHINDRONE [Concomitant]
     Active Substance: NORETHINDRONE
  4. NALTREXONE [Concomitant]
     Active Substance: NALTREXONE
  5. KLONOPIN [Concomitant]
     Active Substance: CLONAZEPAM
  6. CLARITIN [Concomitant]
     Active Substance: LORATADINE
  7. VITAMIN C [Concomitant]
     Active Substance: ASCORBIC ACID
  8. VITAMIN D [Concomitant]
     Active Substance: VITAMIN D NOS
  9. VITAMIN K [Concomitant]
     Active Substance: PHYTONADIONE
  10. VITAMIN B12 [Concomitant]
     Active Substance: CYANOCOBALAMIN
  11. VITAMIN B6 [Concomitant]
     Active Substance: PYRIDOXINE HYDROCHLORIDE

REACTIONS (5)
  - Vulvovaginal burning sensation [None]
  - Vulvovaginal pruritus [None]
  - Blood urine present [None]
  - Application site pain [None]
  - Application site pruritus [None]

NARRATIVE: CASE EVENT DATE: 20241001
